FAERS Safety Report 5368004-2 (Version None)
Quarter: 2007Q2

REPORT INFORMATION
  Report Type: 
  Country: None (occurrence: None)
  Receive Date: 20070622
  Receipt Date: 20070612
  Transmission Date: 20071010
  Serious: Yes (Life-Threatening, Hospitalization)
  Sender: FDA-Public Use
  Company Number: SK-PFIZER INC-2007047992

PATIENT
  Sex: Male
  Weight: 103 kg

DRUGS (13)
  1. SU-011,248 [Suspect]
     Indication: RENAL CELL CARCINOMA STAGE UNSPECIFIED
     Route: 048
  2. AUGMENTIN '125' [Concomitant]
     Dates: start: 20060220, end: 20060224
  3. DIGOXIN [Concomitant]
  4. CONDROSULF [Concomitant]
  5. DEXAMETHASONE 0.5MG TAB [Concomitant]
     Dates: start: 20060914, end: 20060916
  6. DITHIADEN [Concomitant]
     Dates: start: 20060914, end: 20060916
  7. SODIUM CHLORIDE [Concomitant]
     Dates: start: 20060914, end: 20060916
  8. MOVALIS [Concomitant]
  9. MYOLASTAN [Concomitant]
  10. TRITACE [Concomitant]
  11. AGEN [Concomitant]
  12. ANOPYRIN [Concomitant]
  13. FURON [Concomitant]

REACTIONS (1)
  - AORTIC ANEURYSM [None]
